FAERS Safety Report 4627909-8 (Version None)
Quarter: 2005Q2

REPORT INFORMATION
  Report Type: 
  Country: None (occurrence: None)
  Receive Date: 20050401
  Receipt Date: 20050317
  Transmission Date: 20051028
  Serious: Yes (Hospitalization)
  Sender: FDA-Public Use
  Company Number: RENA-11321

PATIENT
  Age: 65 Year
  Sex: Male

DRUGS (15)
  1. RENAGEL [Suspect]
     Indication: HYPERPHOSPHATAEMIA
     Dosage: 0.8 G QD PO
     Route: 049
     Dates: end: 20041105
  2. SELOKEN [Concomitant]
  3. FELODIPINE [Concomitant]
  4. ENALAPRIL [Concomitant]
  5. SIMVASTATIN [Concomitant]
  6. NEORECORMON [Concomitant]
  7. FOLACIN [Concomitant]
  8. ORALOVITE [Concomitant]
  9. KALIUM RETARD [Concomitant]
  10. FUROSEMIDE [Concomitant]
  11. ASPIRIN [Concomitant]
  12. LAKTIPEX [Concomitant]
  13. ALFADIL [Concomitant]
  14. ZOPIKLON (ZOPICLONE) [Concomitant]
  15. VENOFER [Concomitant]

REACTIONS (5)
  - COUGH [None]
  - DYSPNOEA [None]
  - ELECTROCARDIOGRAM ST SEGMENT ELEVATION [None]
  - ELECTROCARDIOGRAM ST-T CHANGE [None]
  - MYOCARDIAL INFARCTION [None]
